FAERS Safety Report 17501951 (Version 1)
Quarter: 2020Q1

REPORT INFORMATION
  Report Type: Spontaneous
  Country: AU (occurrence: AU)
  Receive Date: 20200305
  Receipt Date: 20200305
  Transmission Date: 20200409
  Serious: Yes (Other)
  Sender: FDA-Public Use
  Company Number: AU-ACTELION-A-CH2020-202595

PATIENT
  Age: 39 Year
  Sex: Female

DRUGS (3)
  1. SILDENAFIL. [Concomitant]
     Active Substance: SILDENAFIL
  2. BOSENTAN. [Suspect]
     Active Substance: BOSENTAN
     Indication: PRODUCT USED FOR UNKNOWN INDICATION
     Route: 048
  3. ILOPROST. [Concomitant]
     Active Substance: ILOPROST

REACTIONS (3)
  - Catheterisation cardiac [Unknown]
  - Presyncope [Unknown]
  - Balloon atrial septostomy [Unknown]
